FAERS Safety Report 7725615-4 (Version None)
Quarter: 2011Q3

REPORT INFORMATION
  Report Type: 
  Country: None (occurrence: None)
  Receive Date: 20110902
  Receipt Date: 20110824
  Transmission Date: 20111222
  Serious: Yes (Death)
  Sender: FDA-Public Use
  Company Number: DE-ASTELLAS-2011EU005488

PATIENT
  Sex: Female
  Weight: 90 kg

DRUGS (5)
  1. ACYCLOVIR [Concomitant]
     Indication: ANTIVIRAL PROPHYLAXIS
     Dosage: 0.5 G, UID/QD
     Route: 042
     Dates: start: 20110504
  2. MYCAMINE [Suspect]
     Indication: ANTIFUNGAL PROPHYLAXIS
     Dosage: 50 MG, UID/QD
     Route: 042
     Dates: start: 20110504, end: 20110522
  3. CILASTATIN/IMIPEN [Concomitant]
     Indication: ANTIBIOTIC THERAPY
     Dosage: 0.5 G, TID
     Route: 042
     Dates: start: 20110518
  4. MYCOPHENOLATE MOFETIL [Concomitant]
     Indication: PROPHYLAXIS AGAINST GRAFT VERSUS HOST DISEASE
     Dosage: UNK
     Route: 042
     Dates: start: 20110510
  5. CYCLOSPORINE [Concomitant]
     Indication: PROPHYLAXIS AGAINST GRAFT VERSUS HOST DISEASE
     Dosage: UNK
     Route: 042
     Dates: start: 20110510

REACTIONS (1)
  - CANDIDA SEPSIS [None]
